FAERS Safety Report 6774548-9 (Version None)
Quarter: 2010Q2

REPORT INFORMATION
  Report Type: 
  Country: None (occurrence: None)
  Receive Date: 20100617
  Receipt Date: 20091124
  Transmission Date: 20101027
  Serious: No
  Sender: FDA-Public Use
  Company Number: A0832053A

PATIENT
  Sex: Male

DRUGS (3)
  1. ZYBAN [Suspect]
     Indication: DRUG USE FOR UNKNOWN INDICATION
  2. PLAVIX [Suspect]
     Indication: DRUG USE FOR UNKNOWN INDICATION
  3. CHANTIX [Suspect]
     Indication: DRUG USE FOR UNKNOWN INDICATION
     Route: 065

REACTIONS (2)
  - ADVERSE EVENT [None]
  - DRUG INTERACTION [None]
